FAERS Safety Report 16488992 (Version 1)
Quarter: 2019Q2

REPORT INFORMATION
  Report Type: Spontaneous
  Country: US (occurrence: US)
  Receive Date: 20190628
  Receipt Date: 20190628
  Transmission Date: 20190711
  Serious: Yes (Life-Threatening, Hospitalization, Other)
  Sender: FDA-Public Use
  Company Number: US-AUROBINDO-AUR-APL-2019-035846

PATIENT

DRUGS (1)
  1. LOPERAMIDE 2MG [Suspect]
     Active Substance: LOPERAMIDE
     Dosage: 50 DOSAGE FORM, EVERY OTHER DAY
     Route: 048

REACTIONS (9)
  - Drug abuse [Unknown]
  - Unresponsive to stimuli [Recovered/Resolved]
  - Electrocardiogram QT prolonged [Recovering/Resolving]
  - Hyperhidrosis [Unknown]
  - Ventricular tachycardia [Unknown]
  - Toxicity to various agents [Unknown]
  - Electrocardiogram QRS complex prolonged [Recovering/Resolving]
  - Somnolence [Recovered/Resolved]
  - Brugada syndrome [Recovering/Resolving]
